FAERS Safety Report 6875540-6 (Version None)
Quarter: 2010Q2

REPORT INFORMATION
  Report Type: 
  Country: None (occurrence: None)
  Receive Date: 20100616
  Receipt Date: 20080513
  Transmission Date: 20101027
  Serious: Yes (Other)
  Sender: FDA-Public Use
  Company Number: S08-USA-01413-01

PATIENT
  Age: 82 Year
  Sex: Male

DRUGS (16)
  1. NAMENDA [Suspect]
     Indication: VASCULAR DEMENTIA
     Dosage: 20 MG (10 MG, TWICE A DAY), ORAL; 10 MG (5 MG, TWICE A DAY), ORAL
     Route: 048
     Dates: end: 20080401
  2. NAMENDA [Suspect]
     Indication: VASCULAR DEMENTIA
     Dosage: 20 MG (10 MG, TWICE A DAY), ORAL; 10 MG (5 MG, TWICE A DAY), ORAL
     Route: 048
     Dates: end: 20080401
  3. ARICEPT [Concomitant]
  4. SINEMET [Concomitant]
  5. LOVENOX (HEPARIN-FRACTION, SODIUM SALT) (HEPARIN-FRACTION, SODIUM SALT [Concomitant]
  6. ZESTRIL [Concomitant]
  7. COLACE (DOCUSATE SODIUM) (DOCUSATE SODIUM) [Concomitant]
  8. IRON (IRON) (IRON) [Concomitant]
  9. DUONEB (ALBUTEROL AND IPRATROPIUM) [Concomitant]
  10. PRILOSEC (OMEPRAZOLE) (OMEPRAZOLE) [Concomitant]
  11. ASPIRIN [Concomitant]
  12. MULTI-VITAMIN [Concomitant]
  13. SENNA (SENNA) (SENNA) [Concomitant]
  14. INSULIN (NOS) [Concomitant]
  15. ROBITUSSIN (GUAIFENESIN) [Concomitant]
  16. MAGNESIUM (MAGNESIUM) (MAGNESIUM) [Concomitant]

REACTIONS (1)
  - ORTHOSTATIC HYPOTENSION [None]
